FAERS Safety Report 13875448 (Version 1)
Quarter: 2017Q3

REPORT INFORMATION
  Report Type: Spontaneous
  Country: US (occurrence: US)
  Receive Date: 20170817
  Receipt Date: 20170817
  Transmission Date: 20171127
  Serious: No
  Sender: FDA-Public Use
  Company Number: US-AMGEN-USASP2017122060

PATIENT
  Sex: Female

DRUGS (6)
  1. ENBREL [Suspect]
     Active Substance: ETANERCEPT
     Indication: RHEUMATOID ARTHRITIS
     Dosage: UNK
     Route: 065
     Dates: start: 2002
  2. ENBREL [Suspect]
     Active Substance: ETANERCEPT
     Dosage: UNK
     Route: 065
     Dates: end: 2007
  3. XELJANZ [Concomitant]
     Active Substance: TOFACITINIB CITRATE
  4. SIMPONI [Concomitant]
     Active Substance: GOLIMUMAB
  5. CIMZIA [Concomitant]
     Active Substance: CERTOLIZUMAB PEGOL
  6. ORENCIA [Concomitant]
     Active Substance: ABATACEPT
     Dosage: UNK

REACTIONS (1)
  - Drug effect decreased [Unknown]
